FAERS Safety Report 15838342 (Version 2)
Quarter: 2019Q1

REPORT INFORMATION
  Report Type: Spontaneous
  Country: KR (occurrence: KR)
  Receive Date: 20190117
  Receipt Date: 20190211
  Transmission Date: 20190417
  Serious: Yes (Hospitalization)
  Sender: FDA-Public Use
  Company Number: KR-009507513-1901KOR004123

PATIENT
  Sex: Male

DRUGS (28)
  1. SODIUM CHLORIDE. [Concomitant]
     Active Substance: SODIUM CHLORIDE
     Dosage: 20 MILLILITER;  QUANTITY:2, DAYS:1
     Dates: start: 20181210, end: 20181210
  2. SODIUM CHLORIDE. [Concomitant]
     Active Substance: SODIUM CHLORIDE
     Dosage: 1000 MILLILITER;  QUANTITY:1, DAYS:1
     Dates: start: 20181211, end: 20181211
  3. LIDOCAINE HYDROCHLORIDE. [Concomitant]
     Active Substance: LIDOCAINE HYDROCHLORIDE
     Dosage: QUANTITY:2, DAYS:1
     Dates: start: 20181211, end: 20181211
  4. DEXAMETHASONE SODIUM PHOSPHATE. [Concomitant]
     Active Substance: DEXAMETHASONE SODIUM PHOSPHATE
     Dosage: UNK;  QUANTITY:3, DAYS:1
     Dates: start: 20181210, end: 20181210
  5. SODIUM CHLORIDE. [Concomitant]
     Active Substance: SODIUM CHLORIDE
     Dosage: 20 MILLILITER;  QUANTITY:1, DAYS:2
     Dates: start: 20181203, end: 20181203
  6. KEYTRUDA [Suspect]
     Active Substance: PEMBROLIZUMAB
     Indication: NON-SMALL CELL LUNG CANCER
     Dosage: UNK
     Dates: start: 20181210
  7. LASIX [Concomitant]
     Active Substance: FUROSEMIDE
     Dosage: UNK;  QUANTITY:1, DAYS:1
     Dates: start: 20181210, end: 20181210
  8. POTASSIUM CHLORIDE. [Concomitant]
     Active Substance: POTASSIUM CHLORIDE
     Dosage: UNK;  QUANTITY:1, DAYS:1
     Dates: start: 20181210, end: 20181210
  9. SODIUM CHLORIDE. [Concomitant]
     Active Substance: SODIUM CHLORIDE
     Dosage: 1000 MILLILITER;  QUANTITY:1, DAYS:1
     Dates: start: 20181203, end: 20181203
  10. LIDOCAINE HYDROCHLORIDE. [Concomitant]
     Active Substance: LIDOCAINE HYDROCHLORIDE
     Dosage: QUANTITY:3, DAYS:1
     Dates: start: 20181228, end: 20181228
  11. HEPARIN SODIUM. [Concomitant]
     Active Substance: HEPARIN SODIUM
     Dosage: UNK;  QUANTITY:1, DAYS:1
     Dates: start: 20181203, end: 20181203
  12. SODIUM CHLORIDE. [Concomitant]
     Active Substance: SODIUM CHLORIDE
     Dosage: 500 MILLILITER;  QUANTITY:1, DAYS:1
     Dates: start: 20181203, end: 20181203
  13. SODIUM CHLORIDE. [Concomitant]
     Active Substance: SODIUM CHLORIDE
     Dosage: 1000 MILLILITER;  QUANTITY:2, DAYS:1
     Dates: start: 20181228, end: 20181228
  14. KEYTRUDA [Suspect]
     Active Substance: PEMBROLIZUMAB
     Indication: METASTASES TO PLEURA
     Dosage: UNK
     Dates: start: 20190102
  15. LIDOCAINE HYDROCHLORIDE. [Concomitant]
     Active Substance: LIDOCAINE HYDROCHLORIDE
     Dosage: UNK; QUANTITY:1, DAYS:1
     Dates: start: 20181203, end: 20181203
  16. NEOPLATIN [Concomitant]
     Active Substance: CISPLATIN
     Dosage: 150 MILLIGRAM;  QUANTITY:1, DAYS:1
     Dates: start: 20181210, end: 20181210
  17. SODIUM CHLORIDE. [Concomitant]
     Active Substance: SODIUM CHLORIDE
     Dosage: 20 MILLILITER;  QUANTITY:14 DAYS:2
     Dates: start: 20181227, end: 20181228
  18. TRIDOL (BUPRENORPHINE) [Concomitant]
     Dosage: UNK;  QUANTITY:1, DAYS:3
     Dates: start: 20181203, end: 20181211
  19. ALIMTA [Concomitant]
     Active Substance: PEMETREXED DISODIUM
     Dosage: UNK; QUANTITY:2, DAYS:1
     Dates: start: 20181210, end: 20181210
  20. NEOPLATIN [Concomitant]
     Active Substance: CISPLATIN
     Dosage: 450 MILLIGRAM;  QUANTITY:1, DAYS:1
     Dates: start: 20181210, end: 20181210
  21. STERILE WATER [Concomitant]
     Active Substance: WATER
     Dosage: UNK;  QUANTITY:1, DAYS:18
     Dates: start: 20181210, end: 20181227
  22. SODIUM CHLORIDE. [Concomitant]
     Active Substance: SODIUM CHLORIDE
     Dosage: 50 MILLILITER;  QUANTITY:1, DAYS:1
     Dates: start: 20181210, end: 20181210
  23. SODIUM CHLORIDE. [Concomitant]
     Active Substance: SODIUM CHLORIDE
     Dosage: 100 MILLILITER;  QUANTITY:1, DAYS:1
     Dates: start: 20181221, end: 20181221
  24. ALOXI [Concomitant]
     Active Substance: PALONOSETRON HYDROCHLORIDE
     Dosage: UNK;  QUANTITY:1, DAYS:1
     Dates: start: 20181210, end: 20181210
  25. LIDOCAINE HYDROCHLORIDE. [Concomitant]
     Active Substance: LIDOCAINE HYDROCHLORIDE
     Dosage: QUANTITY:1, DAYS:1
     Dates: start: 20181203, end: 20181203
  26. MECKOOL [Concomitant]
     Dosage: UNK;  QUANTITY:3, DAYS:2
     Dates: start: 20181210, end: 20181210
  27. SODIUM CHLORIDE. [Concomitant]
     Active Substance: SODIUM CHLORIDE
     Dosage: 100 MILLILITER;  QUANTITY:1, DAYS:2
     Dates: start: 20181210, end: 20181210
  28. SODIUM CHLORIDE. [Concomitant]
     Active Substance: SODIUM CHLORIDE
     Dosage: 100 MILLILITER;  QUANTITY:1, DAYS:1
     Dates: start: 20181210, end: 20181210

REACTIONS (2)
  - Product use in unapproved indication [Unknown]
  - Adverse event [Unknown]

NARRATIVE: CASE EVENT DATE: 20181210
